FAERS Safety Report 8500661-1 (Version None)
Quarter: 2012Q3

REPORT INFORMATION
  Report Type: 
  Country: None (occurrence: None)
  Receive Date: 20120710
  Receipt Date: 20120701
  Transmission Date: 20120928
  Serious: Yes (Hospitalization, Other)
  Sender: FDA-Public Use
  Company Number: US-ROCHE-1083562

PATIENT
  Sex: Male
  Weight: 86.26 kg

DRUGS (1)
  1. MABTHERA [Suspect]
     Indication: B-CELL LYMPHOMA
     Route: 042
     Dates: start: 20100101, end: 20111223

REACTIONS (5)
  - LUNG NEOPLASM [None]
  - HYPOACUSIS [None]
  - DYSPNOEA [None]
  - PNEUMONIA [None]
  - PYREXIA [None]
